FAERS Safety Report 8014816-6 (Version None)
Quarter: 2011Q4

REPORT INFORMATION
  Report Type: 
  Country: None (occurrence: None)
  Receive Date: 20111229
  Receipt Date: 20111219
  Transmission Date: 20120403
  Serious: Yes (Death)
  Sender: FDA-Public Use
  Company Number: US-PFIZER INC-2011311315

PATIENT
  Age: 53 Year
  Sex: Male

DRUGS (5)
  1. PROPOXYPHENE HYDROCHLORIDE [Suspect]
  2. FLUOXETINE [Suspect]
  3. METOPROLOL [Suspect]
  4. NORPROPOXYPHENE [Suspect]
  5. OXYCODONE HYDROCHLORIDE [Suspect]
     Route: 048

REACTIONS (3)
  - CARDIAC ARREST [None]
  - RESPIRATORY ARREST [None]
  - DEATH [None]
